FAERS Safety Report 23503442 (Version 1)
Quarter: 2024Q1

REPORT INFORMATION
  Report Type: Spontaneous
  Country: FR (occurrence: FR)
  Receive Date: 20240208
  Receipt Date: 20240208
  Transmission Date: 20240410
  Serious: Yes (Life-Threatening, Hospitalization, Other)
  Sender: FDA-Public Use
  Company Number: FR-AFSSAPS-MP2024000145

PATIENT
  Age: 38 Year
  Sex: Female
  Weight: 70 kg

DRUGS (2)
  1. ACETAMINOPHEN [Suspect]
     Active Substance: ACETAMINOPHEN
     Indication: Toxicity to various agents
     Dosage: UNK
     Route: 048
     Dates: start: 20230118, end: 20230118
  2. VALIUM [Suspect]
     Active Substance: DIAZEPAM
     Indication: Toxicity to various agents
     Dosage: UNK
     Route: 048
     Dates: start: 20230118, end: 20230118

REACTIONS (2)
  - Coma [Recovered/Resolved]
  - Acute hepatic failure [Recovered/Resolved]

NARRATIVE: CASE EVENT DATE: 20230119
